FAERS Safety Report 24936748 (Version 3)
Quarter: 2025Q2

REPORT INFORMATION
  Report Type: Report from Study
  Country: US (occurrence: US)
  Receive Date: 20250206
  Receipt Date: 20250402
  Transmission Date: 20250716
  Serious: Yes (Other)
  Sender: DR REDDYS
  Company Number: US-DRL-USA-USA/2025/02/001765

PATIENT
  Age: 25 Year

DRUGS (1)
  1. ZENATANE [Suspect]
     Active Substance: ISOTRETINOIN
     Indication: Product used for unknown indication
     Dosage: AVERAGE DAILY DOSE: 80 MG?TOTAL COURSES 2
     Route: 065
     Dates: start: 20241014, end: 20250128

REACTIONS (2)
  - Exposure during pregnancy [Unknown]
  - Abortion induced [Unknown]
